FAERS Safety Report 24251666 (Version 1)
Quarter: 2024Q3

REPORT INFORMATION
  Report Type: Spontaneous
  Country: US (occurrence: US)
  Receive Date: 20240827
  Receipt Date: 20240827
  Transmission Date: 20241016
  Serious: Yes (Other)
  Sender: NOVO NORDISK
  Company Number: US-NOVOPROD-1271756

PATIENT
  Age: 68 Year
  Sex: Male

DRUGS (1)
  1. VICTOZA [Suspect]
     Active Substance: LIRAGLUTIDE
     Indication: Type 2 diabetes mellitus
     Dosage: 1.8 MG, QD
     Route: 058
     Dates: start: 2014

REACTIONS (2)
  - Lower limb fracture [Recovering/Resolving]
  - Fall [Recovering/Resolving]

NARRATIVE: CASE EVENT DATE: 20240701
